FAERS Safety Report 20510541 (Version 9)
Quarter: 2022Q3

REPORT INFORMATION
  Report Type: Spontaneous
  Country: GB (occurrence: GB)
  Receive Date: 20220224
  Receipt Date: 20220915
  Transmission Date: 20221026
  Serious: Yes (Other)
  Sender: FDA-Public Use
  Company Number: GB-EMA-DD-20190509-agrahari_p-160531

PATIENT
  Sex: Male

DRUGS (16)
  1. OLANZAPINE [Suspect]
     Active Substance: OLANZAPINE
     Indication: Schizophrenia
     Dosage: 20 MG, HS, (20 MG EVERY NIGHT)
     Route: 065
  2. OLANZAPINE [Suspect]
     Active Substance: OLANZAPINE
     Indication: Schizophrenia
     Dosage: UNK ()
     Route: 065
  3. CODEINE [Suspect]
     Active Substance: CODEINE
     Indication: Schizophrenia
     Dosage: 15 MG, PRN ; AS NECESSARY
     Route: 065
  4. CODEINE [Suspect]
     Active Substance: CODEINE
     Indication: Schizophrenia
  5. CLONAZEPAM [Suspect]
     Active Substance: CLONAZEPAM
     Indication: Schizophrenia
     Dosage: 0.5 MILLIGRAM, PM
     Route: 065
  6. CLONAZEPAM [Suspect]
     Active Substance: CLONAZEPAM
     Dosage: 1 MILLIGRAM, DAILY, 0.5 MILLIGRAM, PM
     Route: 065
  7. CLONAZEPAM [Suspect]
     Active Substance: CLONAZEPAM
     Dosage: 0.5 MILLIGRAM
     Route: 065
  8. CLONAZEPAM [Suspect]
     Active Substance: CLONAZEPAM
     Dosage: UNK MILLIGRAM
     Route: 065
  9. CLONAZEPAM [Suspect]
     Active Substance: CLONAZEPAM
     Dosage: 5 MG, QD
     Route: 065
  10. VALPROATE [Suspect]
     Active Substance: VALPROIC ACID
     Indication: Schizophrenia
     Dosage: 700MG ON - ONCE EVERY NIGHT
     Route: 065
  11. VALPROATE [Suspect]
     Active Substance: VALPROIC ACID
     Dosage: 500MG OM - ONCE EVERY MORNING
     Route: 065
  12. VALPROATE [Suspect]
     Active Substance: VALPROIC ACID
     Dosage: UNK, (500MG OM 700MG ON)
     Route: 065
  13. VALPROATE [Suspect]
     Active Substance: VALPROIC ACID
     Dosage: 500 MILLIGRAM, DAILY, 500 MG, QD ((12 HRS))
     Route: 065
  14. VALPROATE [Suspect]
     Active Substance: VALPROIC ACID
     Dosage: 700 MILLIGRAM, DAILY, 700 MG, ONCE PER DAY (PM (12 HRS))
     Route: 065
  15. FLUPENTIXOL [Suspect]
     Active Substance: FLUPENTIXOL
     Indication: Schizophrenia
     Dosage: 200 MILLIGRAM, Q2W
     Route: 065
  16. FLUPENTIXOL [Suspect]
     Active Substance: FLUPENTIXOL
     Dosage: 200 MILLIGRAM, DAILY, 200 MG, UNK
     Route: 065

REACTIONS (3)
  - Neutropenia [Recovered/Resolved]
  - Off label use [Unknown]
  - Intentional product misuse [Unknown]

NARRATIVE: CASE EVENT DATE: 20180809
